FAERS Safety Report 4463864-1 (Version None)
Quarter: 2004Q3

REPORT INFORMATION
  Report Type: 
  Country: None (occurrence: None)
  Receive Date: 20040929
  Receipt Date: 20040914
  Transmission Date: 20050211
  Serious: Yes (Hospitalization)
  Sender: FDA-Public Use
  Company Number: 2004203327NO

PATIENT
  Age: 56 Year
  Sex: Male

DRUGS (2)
  1. BEXTRA [Suspect]
     Indication: MUSCLE STRAIN
     Dosage: SEE IMAGE
     Route: 048
     Dates: start: 20040301, end: 20040301
  2. BEXTRA [Suspect]
     Indication: MUSCLE STRAIN
     Dosage: SEE IMAGE
     Route: 048
     Dates: start: 20040302, end: 20040304

REACTIONS (4)
  - DRUG ERUPTION [None]
  - GASTRIC ULCER [None]
  - HEADACHE [None]
  - PRURITUS [None]
